FAERS Safety Report 4933230-0 (Version None)
Quarter: 2006Q1

REPORT INFORMATION
  Report Type: 
  Country: None (occurrence: None)
  Receive Date: 20060306
  Receipt Date: 20050117
  Transmission Date: 20060701
  Serious: Yes (Hospitalization)
  Sender: FDA-Public Use
  Company Number: US-MERCK-0501USA02858

PATIENT
  Age: 59 Year
  Sex: Female
  Weight: 113 kg

DRUGS (7)
  1. VIOXX [Suspect]
     Indication: OSTEOARTHRITIS
     Route: 048
     Dates: start: 19990101, end: 20040101
  2. VIOXX [Suspect]
     Route: 048
     Dates: start: 19990101, end: 20040101
  3. GASTROINTESTINAL PREPARATIONS (UNSPECIFIED) [Concomitant]
     Route: 065
  4. HYDROCHLOROTHIAZIDE [Concomitant]
     Route: 065
  5. LEVOTHYROXINE SODIUM [Concomitant]
     Route: 065
  6. ATACAND [Concomitant]
     Route: 065
  7. PREMARIN [Concomitant]
     Route: 065

REACTIONS (29)
  - ABDOMINAL PAIN [None]
  - ACUTE MYOCARDIAL INFARCTION [None]
  - ANXIETY [None]
  - BLOOD PRESSURE INCREASED [None]
  - BURSITIS [None]
  - CALCULUS URINARY [None]
  - CARPAL TUNNEL SYNDROME [None]
  - CYST [None]
  - DRUG HYPERSENSITIVITY [None]
  - ESSENTIAL HYPERTENSION [None]
  - GOITRE [None]
  - HERPES VIRUS INFECTION [None]
  - HYPERTENSION [None]
  - HYPOTHYROIDISM [None]
  - JOINT LOCK [None]
  - NAUSEA [None]
  - NEPHROLITHIASIS [None]
  - OBESITY [None]
  - PAIN [None]
  - SEPSIS [None]
  - SHOULDER PAIN [None]
  - SINUSITIS [None]
  - SLEEP APNOEA SYNDROME [None]
  - SUPRAVENTRICULAR EXTRASYSTOLES [None]
  - THERMAL BURN [None]
  - URINARY TRACT INFECTION [None]
  - VENTRICULAR EXTRASYSTOLES [None]
  - VENTRICULAR TACHYCARDIA [None]
  - VOMITING [None]
